FAERS Safety Report 9109090 (Version 1)
Quarter: 2013Q1

REPORT INFORMATION
  Report Type: Spontaneous
  Country: US (occurrence: US)
  Receive Date: 20130222
  Receipt Date: 20130222
  Transmission Date: 20140127
  Serious: Yes (Other)
  Sender: FDA-Public Use
  Company Number: US-TEVA-387724USA

PATIENT
  Age: 38 Year
  Sex: Female
  Weight: 90.8 kg

DRUGS (5)
  1. NUVIGIL [Suspect]
     Indication: SOMNOLENCE
     Route: 048
  2. WELLBUTRIN [Concomitant]
     Dosage: 250 MILLIGRAM DAILY;
     Route: 048
  3. ZOLOFT [Concomitant]
     Dosage: 100 MILLIGRAM DAILY;
     Route: 048
  4. OCELLA [Concomitant]
     Indication: CONTRACEPTION
  5. VITAMINS [Concomitant]
     Indication: SUPPLEMENTATION THERAPY

REACTIONS (4)
  - Pharyngeal oedema [Not Recovered/Not Resolved]
  - Tension [Not Recovered/Not Resolved]
  - Heart rate increased [Not Recovered/Not Resolved]
  - Anxiety [Not Recovered/Not Resolved]
